FAERS Safety Report 9470551 (Version 1)
Quarter: 2013Q3

REPORT INFORMATION
  Report Type: Spontaneous
  Country: CH (occurrence: CH)
  Receive Date: 20130822
  Receipt Date: 20130822
  Transmission Date: 20140515
  Serious: Yes (Hospitalization, Other)
  Sender: FDA-Public Use
  Company Number: CH-PFIZER INC-2013239963

PATIENT
  Age: 69 Year
  Sex: Female

DRUGS (11)
  1. PANTOZOL [Suspect]
     Indication: LUMBAR VERTEBRAL FRACTURE
     Dosage: UNK (1 DOSAGE FORMS)
     Route: 048
     Dates: start: 20121219, end: 201301
  2. PANTOZOL [Suspect]
     Indication: PELVIC FRACTURE
  3. NOVALGIN [Suspect]
     Indication: LUMBAR VERTEBRAL FRACTURE
     Dosage: UNK (1 DOSAGE FORMS)
     Route: 048
     Dates: start: 20121219, end: 201301
  4. NOVALGIN [Suspect]
     Indication: PELVIC FRACTURE
  5. DAFALGAN [Suspect]
     Indication: LUMBAR VERTEBRAL FRACTURE
     Dosage: UNK (1 DOSAGE FORMS)
     Route: 048
     Dates: start: 20121219, end: 201301
  6. DAFALGAN [Suspect]
     Indication: PELVIC FRACTURE
  7. IRFEN [Suspect]
     Indication: LUMBAR VERTEBRAL FRACTURE
     Dosage: UNK (1 DOSAGE FORMS)
     Route: 048
     Dates: start: 20121219, end: 201301
  8. IRFEN [Suspect]
     Indication: PELVIC FRACTURE
  9. ASPIRIN CARDIO [Concomitant]
     Dosage: 100 MG, 1X/DAY
     Route: 048
  10. VOTUM [Concomitant]
     Dosage: 1 DF, 1X/DAY
     Route: 048
  11. TORASEM [Concomitant]
     Dosage: 0.5 DF, 1X/DAY
     Route: 048

REACTIONS (2)
  - Acute generalised exanthematous pustulosis [Recovering/Resolving]
  - Off label use [Unknown]
